FAERS Safety Report 9408152 (Version 1)
Quarter: 2013Q3

REPORT INFORMATION
  Report Type: Spontaneous
  Country: US (occurrence: US)
  Receive Date: 20130718
  Receipt Date: 20130718
  Transmission Date: 20140515
  Serious: Yes (Other)
  Sender: FDA-Public Use
  Company Number: US-PFIZER INC-2013208595

PATIENT
  Sex: Female
  Weight: .6 kg

DRUGS (1)
  1. MORPHINE SULFATE [Suspect]
     Indication: ANALGESIC THERAPY
     Dosage: 30 UG/KG/H
     Route: 042

REACTIONS (3)
  - Urinary retention [Recovered/Resolved]
  - Pyelocaliectasis [Recovered/Resolved]
  - Abdominal distension [Unknown]
